FAERS Safety Report 7791806-X (Version None)
Quarter: 2011Q4

REPORT INFORMATION
  Report Type: 
  Country: None (occurrence: None)
  Receive Date: 20111003
  Receipt Date: 20110927
  Transmission Date: 20120403
  Serious: No
  Sender: FDA-Public Use
  Company Number: US-PFIZER INC-2011179956

PATIENT
  Sex: Female

DRUGS (5)
  1. PREVACID [Suspect]
     Indication: TONGUE DISCOLOURATION
  2. PRILOSEC [Suspect]
     Indication: TONGUE DISCOLOURATION
  3. PREVACID [Suspect]
     Indication: DYSGEUSIA
     Dosage: 30 MG, UNK
     Route: 048
  4. ZYVOX [Suspect]
     Indication: STAPHYLOCOCCAL INFECTION
     Dosage: UNK, 2X/DAY
     Route: 048
     Dates: start: 20101101, end: 20101101
  5. PRILOSEC [Suspect]
     Indication: DYSGEUSIA
     Dosage: UNK
     Route: 048

REACTIONS (3)
  - TONGUE DISCOLOURATION [None]
  - ORAL PAIN [None]
  - DYSGEUSIA [None]
